FAERS Safety Report 14031000 (Version 1)
Quarter: 2017Q4

REPORT INFORMATION
  Report Type: Spontaneous
  Country: AU (occurrence: AU)
  Receive Date: 20171002
  Receipt Date: 20171002
  Transmission Date: 20180321
  Serious: Yes (Other)
  Sender: FDA-Public Use
  Company Number: PHHY2017AU141126

PATIENT
  Sex: Female

DRUGS (2)
  1. SERTRALINE [Suspect]
     Active Substance: SERTRALINE HYDROCHLORIDE
     Dosage: ONCE A DAY EVERYDAY IN THE EVENING
     Route: 065
  2. SERTRALINE [Suspect]
     Active Substance: SERTRALINE HYDROCHLORIDE
     Indication: MAJOR DEPRESSION
     Dosage: ONCE A DAY EVERYDAY IN THE EVENING
     Route: 065

REACTIONS (5)
  - Memory impairment [Unknown]
  - Hypomania [Unknown]
  - Nausea [Unknown]
  - Paraesthesia [Unknown]
  - Tremor [Unknown]
